FAERS Safety Report 16167735 (Version 3)
Quarter: 2019Q2

REPORT INFORMATION
  Report Type: Report from Study
  Country: CZ (occurrence: CZ)
  Receive Date: 20190408
  Receipt Date: 20190509
  Transmission Date: 20190711
  Serious: Yes (Hospitalization)
  Sender: FDA-Public Use
  Company Number: CZ-ROCHE-2296679

PATIENT
  Age: 67 Year
  Sex: Female
  Weight: 57 kg

DRUGS (16)
  1. ATEZOLIZUMAB. [Suspect]
     Active Substance: ATEZOLIZUMAB
     Indication: HEPATOCELLULAR CARCINOMA
     Dosage: DATE OF MOST RECENT DOSE OF ATEZOLIZUMAB PRIOR TO AE ONSET: 11/MAR/2019
     Route: 042
     Dates: start: 20181126
  2. EUTHYROX [Concomitant]
     Active Substance: LEVOTHYROXINE SODIUM
     Indication: HYPOTHYROIDISM
     Route: 065
     Dates: start: 1993
  3. BONVIVA [Concomitant]
     Active Substance: IBANDRONATE SODIUM
     Indication: OSTEOPOROSIS
     Route: 065
     Dates: start: 2013
  4. CALCICHEW [Concomitant]
     Active Substance: CALCIUM CARBONATE
     Indication: OSTEOPOROSIS
     Route: 065
     Dates: start: 2013
  5. NOVALGIN (METAMIZOLE SODIUM) [Concomitant]
     Active Substance: METAMIZOLE SODIUM
     Indication: PYREXIA
     Route: 065
     Dates: start: 2018
  6. VEROSPIRON [Concomitant]
     Active Substance: SPIRONOLACTONE
     Indication: ASCITES
     Route: 065
     Dates: start: 20190315
  7. BEVACIZUMAB. [Suspect]
     Active Substance: BEVACIZUMAB
     Indication: HEPATOCELLULAR CARCINOMA
     Dosage: DATE OF MOST RECENT DOSE OF BEVACIZUMAB PRIOR TO AE ONSET: 28/JAN/2019 (855 MG)
     Route: 042
     Dates: start: 20181126
  8. CONTROLOC [Concomitant]
     Active Substance: PANTOPRAZOLE SODIUM
     Indication: OESOPHAGEAL HAEMORRHAGE
     Route: 065
     Dates: start: 20190131
  9. FENTANYL. [Concomitant]
     Active Substance: FENTANYL
     Indication: PREMEDICATION
     Route: 065
     Dates: start: 20190304, end: 20190304
  10. LIDOCAIN [LIDOCAINE] [Concomitant]
     Indication: PREMEDICATION
     Route: 065
     Dates: start: 20190304, end: 20190304
  11. PARALEN [PARACETAMOL] [Concomitant]
     Route: 065
     Dates: start: 20190107
  12. MIDAZOLAM [Concomitant]
     Active Substance: MIDAZOLAM HYDROCHLORIDE
     Indication: PREMEDICATION
     Route: 065
     Dates: start: 20190304, end: 20190304
  13. ATRAM [Concomitant]
     Indication: HYPERTENSION
     Route: 065
     Dates: start: 20190315
  14. DITHIADEN [Concomitant]
     Active Substance: BISULEPIN
     Indication: PREMEDICATION
     Route: 065
     Dates: start: 20190107
  15. KINITO [Concomitant]
     Indication: OESOPHAGEAL HAEMORRHAGE
     Route: 065
     Dates: start: 20190131
  16. VIGANTOL [COLECALCIFEROL] [Concomitant]
     Indication: OSTEOPOROSIS
     Route: 065
     Dates: start: 2013

REACTIONS (1)
  - Varices oesophageal [Recovered/Resolved]

NARRATIVE: CASE EVENT DATE: 20190304
